FAERS Safety Report 16658332 (Version 1)
Quarter: 2019Q3

REPORT INFORMATION
  Report Type: Spontaneous
  Country: US (occurrence: US)
  Receive Date: 20190801
  Receipt Date: 20190801
  Transmission Date: 20191004
  Serious: Yes (Hospitalization)
  Sender: FDA-Public Use
  Company Number: None

PATIENT
  Age: 39 Year
  Sex: Female

DRUGS (13)
  1. DITROPAN XL TAB 10 MG [Concomitant]
  2. CYMBALTA CAP 60 MG [Concomitant]
  3. ASPIRIN 81 TAB EC [Concomitant]
  4. VRAYLAR CAP 3 MG [Concomitant]
  5. PRAZOSIN HCL CAP 2 MG [Concomitant]
  6. LITHIUM CARB POW [Concomitant]
  7. TRAZODONE TAB 100 MG [Concomitant]
  8. CYANOCOBAL POW [Concomitant]
  9. DALFAMPRIDINE. [Suspect]
     Active Substance: DALFAMPRIDINE
     Indication: MULTIPLE SCLEROSIS
     Route: 048
     Dates: start: 20181018
  10. GABAPENTIN CAP 300 MG [Concomitant]
  11. LIPITOR TAB 80 MG [Concomitant]
  12. ALBUTEROL NEB 1.25 MG/3 [Concomitant]
  13. SINGULAR TAB 10 MG [Concomitant]

REACTIONS (1)
  - Multiple sclerosis relapse [None]

NARRATIVE: CASE EVENT DATE: 20190705
